FAERS Safety Report 9543843 (Version 1)
Quarter: 2013Q3

REPORT INFORMATION
  Report Type: Spontaneous
  Country: US (occurrence: US)
  Receive Date: 20130923
  Receipt Date: 20130923
  Transmission Date: 20140515
  Serious: Yes (Other)
  Sender: FDA-Public Use
  Company Number: US-GLAXOSMITHKLINE-A1042283A

PATIENT
  Sex: Male

DRUGS (3)
  1. POTIGA [Suspect]
     Route: 048
  2. ANTI-EPILEPTIC DRUGS (UNSPECIFIED) [Concomitant]
  3. VAGAL NERVE STIMULATOR [Concomitant]

REACTIONS (2)
  - Convulsion [Not Recovered/Not Resolved]
  - Visual acuity reduced [Unknown]
